FAERS Safety Report 8511170-8 (Version None)
Quarter: 2012Q3

REPORT INFORMATION
  Report Type: 
  Country: None (occurrence: None)
  Receive Date: 20120716
  Receipt Date: 20120709
  Transmission Date: 20120928
  Serious: Yes (Other)
  Sender: FDA-Public Use
  Company Number: US-BAYER-2012-019573

PATIENT
  Age: 43 Year
  Sex: Female
  Weight: 86.168 kg

DRUGS (4)
  1. YAZ [Suspect]
     Indication: PREMENSTRUAL SYNDROME
  2. YAZ [Suspect]
     Indication: ACNE
     Dosage: UNK
     Dates: start: 20090401, end: 20100601
  3. EXLAX [PHENOLPHTHALEIN] [Concomitant]
     Dosage: 3 DOSES
     Route: 048
     Dates: start: 20100210
  4. YAZ [Suspect]
     Indication: MOOD SWINGS

REACTIONS (2)
  - CHOLELITHIASIS [None]
  - PAIN [None]
